FAERS Safety Report 23046044 (Version 1)
Quarter: 2023Q4

REPORT INFORMATION
  Report Type: Spontaneous
  Country: GB (occurrence: GB)
  Receive Date: 20231009
  Receipt Date: 20231009
  Transmission Date: 20240109
  Serious: Yes (Disabling, Other)
  Sender: FDA-Public Use
  Company Number: GB-MHRA-MED-202310032011017200-JQPBD

PATIENT
  Age: 49 Year
  Sex: Female

DRUGS (1)
  1. MIRTAZAPINE [Suspect]
     Active Substance: MIRTAZAPINE
     Indication: Product used for unknown indication
     Dosage: 50 MILLIGRAM, QD
     Route: 065
     Dates: start: 202305, end: 202309

REACTIONS (12)
  - Physical disability [Recovering/Resolving]
  - Impaired work ability [Recovering/Resolving]
  - Liver injury [Not Recovered/Not Resolved]
  - Abdominal distension [Recovered/Resolved]
  - Hypertension [Recovering/Resolving]
  - Dyspnoea [Recovered/Resolved]
  - Depressed mood [Not Recovered/Not Resolved]
  - Anger [Recovered/Resolved]
  - Irritability [Recovered/Resolved]
  - Musculoskeletal stiffness [Recovering/Resolving]
  - Weight increased [Recovering/Resolving]
  - Medication error [Unknown]

NARRATIVE: CASE EVENT DATE: 20230501
